FAERS Safety Report 26092493 (Version 1)
Quarter: 2025Q4

REPORT INFORMATION
  Report Type: Spontaneous
  Country: EU (occurrence: EU)
  Receive Date: 20251126
  Receipt Date: 20251126
  Transmission Date: 20260118
  Serious: Yes (Other)
  Sender: PFIZER
  Company Number: None

PATIENT
  Age: 63 Year
  Sex: Male
  Weight: 79 kg

DRUGS (4)
  1. METHOTREXATE SODIUM [Suspect]
     Active Substance: METHOTREXATE SODIUM
     Indication: Transitional cell carcinoma
     Dosage: 60 MG, 1X/DAY (60 MG/J)
     Route: 042
     Dates: start: 20250603, end: 20250603
  2. DOXORUBICIN HYDROCHLORIDE [Suspect]
     Active Substance: DOXORUBICIN HYDROCHLORIDE
     Indication: Transitional cell carcinoma
     Dosage: 70 MG, 1X/DAY (70 MG/J)
     Route: 042
     Dates: start: 20250603, end: 20250603
  3. CISPLATIN [Suspect]
     Active Substance: CISPLATIN
     Indication: Transitional cell carcinoma
     Dosage: 70 MG, 1X/DAY (70 MG/J)
     Route: 042
     Dates: start: 20250603, end: 20250603
  4. VINBLASTINE SULFATE [Suspect]
     Active Substance: VINBLASTINE SULFATE
     Indication: Transitional cell carcinoma
     Dosage: 6 MG (6 MG AT D2)
     Route: 042
     Dates: start: 20250603, end: 20250603

REACTIONS (3)
  - Toxic erythema of chemotherapy [Recovering/Resolving]
  - Rash maculo-papular [Recovering/Resolving]
  - Off label use [Recovered/Resolved]

NARRATIVE: CASE EVENT DATE: 20250603
